APPROVED DRUG PRODUCT: TIMOLOL
Active Ingredient: TIMOLOL
Strength: 0.5%
Dosage Form/Route: SOLUTION/DROPS;OPHTHALMIC
Application: A205309 | Product #002
Applicant: EPIC PHARMA LLC
Approved: Sep 30, 2016 | RLD: No | RS: No | Type: DISCN